FAERS Safety Report 8519247-8 (Version None)
Quarter: 2012Q3

REPORT INFORMATION
  Report Type: 
  Country: None (occurrence: None)
  Receive Date: 20120718
  Receipt Date: 20120711
  Transmission Date: 20120928
  Serious: Yes (Hospitalization)
  Sender: FDA-Public Use
  Company Number: US-US-EMD SERONO, INC.-7147497

PATIENT
  Sex: Female

DRUGS (1)
  1. REBIF [Suspect]
     Indication: MULTIPLE SCLEROSIS
     Route: 058
     Dates: start: 20110816

REACTIONS (6)
  - FALL [None]
  - OEDEMA [None]
  - FATIGUE [None]
  - MULTIPLE SCLEROSIS [None]
  - DEPRESSION [None]
  - MUSCULAR WEAKNESS [None]
